FAERS Safety Report 4422655-8 (Version None)
Quarter: 2004Q3

REPORT INFORMATION
  Report Type: 
  Country: None (occurrence: None)
  Receive Date: 20040713
  Receipt Date: 20030711
  Transmission Date: 20050211
  Serious: No
  Sender: FDA-Public Use
  Company Number: PHEH2003US05967

PATIENT
  Age: 19 Year
  Sex: Female
  Weight: 49.9 kg

DRUGS (1)
  1. ELIDEL [Suspect]
     Dosage: BID, TOPICAL
     Route: 061
     Dates: start: 20030703, end: 20030705

REACTIONS (5)
  - DERMATITIS EXFOLIATIVE [None]
  - DRY SKIN [None]
  - INFLAMMATION [None]
  - OEDEMA PERIPHERAL [None]
  - PARAESTHESIA [None]
